FAERS Safety Report 11199467 (Version 1)
Quarter: 2015Q2

REPORT INFORMATION
  Report Type: Spontaneous
  Country: US (occurrence: US)
  Receive Date: 20150618
  Receipt Date: 20150618
  Transmission Date: 20150821
  Serious: No
  Sender: FDA-Public Use
  Company Number: US-BIOGENIDEC-2015BI083114

PATIENT
  Sex: Male

DRUGS (1)
  1. TECFIDERA [Suspect]
     Active Substance: DIMETHYL FUMARATE
     Indication: MULTIPLE SCLEROSIS
     Route: 048
     Dates: start: 20150401

REACTIONS (6)
  - Strabismus [Unknown]
  - Temperature intolerance [Not Recovered/Not Resolved]
  - Diplopia [Unknown]
  - Arthropod bite [Unknown]
  - Headache [Unknown]
  - Stress [Unknown]
